FAERS Safety Report 13126699 (Version 1)
Quarter: 2017Q1

REPORT INFORMATION
  Report Type: Spontaneous
  Country: US (occurrence: US)
  Receive Date: 20170118
  Receipt Date: 20170118
  Transmission Date: 20170428
  Serious: Yes (Other)
  Sender: FDA-Public Use
  Company Number: US-ROCHE-1733101

PATIENT
  Age: 21 Year
  Sex: Female

DRUGS (2)
  1. ADALIMUMAB [Suspect]
     Active Substance: ADALIMUMAB
     Indication: JUVENILE IDIOPATHIC ARTHRITIS
     Route: 065
  2. RITUXIMAB [Suspect]
     Active Substance: RITUXIMAB
     Indication: JUVENILE IDIOPATHIC ARTHRITIS
     Route: 065

REACTIONS (5)
  - Perirectal abscess [Unknown]
  - Urinary tract infection [Unknown]
  - Infection [Unknown]
  - Sinusitis [Unknown]
  - Arthritis bacterial [Recovering/Resolving]
